FAERS Safety Report 4858831-X (Version None)
Quarter: 2005Q4

REPORT INFORMATION
  Report Type: 
  Country: None (occurrence: None)
  Receive Date: 20051219
  Receipt Date: 20050603
  Transmission Date: 20060501
  Serious: Yes (Other)
  Sender: FDA-Public Use
  Company Number: PT-AMGEN-UK137119

PATIENT
  Sex: Female
  Weight: 58 kg

DRUGS (4)
  1. NEULASTA [Suspect]
     Indication: AGRANULOCYTOSIS
     Route: 058
     Dates: start: 20040321
  2. NEUPOGEN [Suspect]
     Indication: AGRANULOCYTOSIS
     Route: 065
     Dates: end: 20050701
  3. PARACETAMOL [Concomitant]
     Route: 048
  4. METHYLPREDNISOLONE [Concomitant]
     Route: 065

REACTIONS (4)
  - ARTHRALGIA [None]
  - DRUG INEFFECTIVE [None]
  - THROMBOCYTOPENIA [None]
  - VASCULITIS [None]
